FAERS Safety Report 7344521-0 (Version None)
Quarter: 2011Q1

REPORT INFORMATION
  Report Type: 
  Country: None (occurrence: None)
  Receive Date: 20110307
  Receipt Date: 20110307
  Transmission Date: 20110831
  Serious: No
  Sender: FDA-Public Use
  Company Number: None

PATIENT
  Age: 31 Year
  Sex: Female
  Weight: 54.2 kg

DRUGS (2)
  1. QUETIAPINE [Suspect]
     Indication: AGGRESSION
     Dosage: 25 - 50 MG DAILY PO, 75 MG DAILY PO
     Route: 048
     Dates: start: 20101027, end: 20101101
  2. QUETIAPINE [Suspect]
     Indication: AGGRESSION
     Dosage: 25 - 50 MG DAILY PO, 75 MG DAILY PO
     Route: 048
     Dates: start: 20101019, end: 20101026

REACTIONS (1)
  - BLOOD TRIGLYCERIDES INCREASED [None]
